FAERS Safety Report 15904799 (Version 1)
Quarter: 2019Q1

REPORT INFORMATION
  Report Type: Spontaneous
  Country: CO (occurrence: CO)
  Receive Date: 20190204
  Receipt Date: 20190204
  Transmission Date: 20190417
  Serious: Yes (Other)
  Sender: FDA-Public Use
  Company Number: CO-ROCHE-2252798

PATIENT
  Sex: Female

DRUGS (1)
  1. TRASTUZUMAB. [Suspect]
     Active Substance: TRASTUZUMAB
     Indication: HER-2 POSITIVE BREAST CANCER
     Route: 065

REACTIONS (8)
  - Dyspnoea [Unknown]
  - Congestive cardiomyopathy [Unknown]
  - Pleural effusion [Recovering/Resolving]
  - Pulmonary oedema [Recovering/Resolving]
  - Cardiac failure [Unknown]
  - Cough [Unknown]
  - Toxicity to various agents [Unknown]
  - Pulmonary hypertension [Unknown]
